FAERS Safety Report 4824162-7 (Version None)
Quarter: 2005Q4

REPORT INFORMATION
  Report Type: 
  Country: None (occurrence: None)
  Receive Date: 20051108
  Receipt Date: 20051020
  Transmission Date: 20060501
  Serious: Yes (Hospitalization, Other)
  Sender: FDA-Public Use
  Company Number: USA020413870

PATIENT
  Age: 83 Year
  Sex: Female

DRUGS (4)
  1. HUMALOG MIX 75/25 [Suspect]
     Dates: end: 20050101
  2. HUMALOG [Suspect]
     Indication: DIABETES MELLITUS
     Dosage: 17 U DAY
     Dates: start: 20020201
  3. LANTUS [Concomitant]
  4. ACTOS [Concomitant]

REACTIONS (9)
  - DIABETES MELLITUS INADEQUATE CONTROL [None]
  - EYE IRRITATION [None]
  - HEADACHE [None]
  - HERPES ZOSTER [None]
  - MEMORY IMPAIRMENT [None]
  - MYOCARDIAL INFARCTION [None]
  - PHARMACEUTICAL PRODUCT COMPLAINT [None]
  - PHOTOPHOBIA [None]
  - VISUAL ACUITY REDUCED [None]
